FAERS Safety Report 5918857-1 (Version None)
Quarter: 2008Q4

REPORT INFORMATION
  Report Type: 
  Country: None (occurrence: None)
  Receive Date: 20081015
  Receipt Date: 20081003
  Transmission Date: 20090506
  Serious: Yes (Hospitalization)
  Sender: FDA-Public Use
  Company Number: JP-AMGEN-US305981

PATIENT
  Sex: Female
  Weight: 51 kg

DRUGS (9)
  1. ENBREL [Suspect]
     Indication: RHEUMATOID ARTHRITIS
     Route: 058
     Dates: start: 20070403, end: 20080820
  2. ENBREL [Suspect]
     Dosage: LYOPHILIZED: 50 MG ONCE WEEKLY
     Route: 058
     Dates: start: 20070403, end: 20080311
  3. PREDNISOLONE [Suspect]
     Indication: DRUG USE FOR UNKNOWN INDICATION
     Route: 048
     Dates: start: 20070109
  4. RHEUMATREX [Suspect]
     Indication: RHEUMATOID ARTHRITIS
     Dosage: 4 MG, FREQUENCY NOT SPECIFIED
     Route: 048
     Dates: start: 20060718, end: 20080820
  5. CYTOTEC [Concomitant]
     Route: 048
     Dates: start: 20070220
  6. OSTELUC [Concomitant]
     Route: 048
     Dates: start: 20070220
  7. PRAVASTATIN SODIUM [Concomitant]
     Route: 048
     Dates: start: 20070529
  8. FAMOTIDINE [Concomitant]
     Route: 048
     Dates: start: 20070327
  9. BONALON [Concomitant]
     Route: 048
     Dates: start: 20071120

REACTIONS (1)
  - PULMONARY TUBERCULOSIS [None]
